FAERS Safety Report 16171476 (Version 1)
Quarter: 2019Q2

REPORT INFORMATION
  Report Type: Spontaneous
  Country: US (occurrence: US)
  Receive Date: 20190408
  Receipt Date: 20190408
  Transmission Date: 20190711
  Serious: Yes (Other)
  Sender: FDA-Public Use
  Company Number: US-SUNOVION-2019SUN001361

PATIENT
  Sex: Female

DRUGS (3)
  1. LATUDA [Suspect]
     Active Substance: LURASIDONE HYDROCHLORIDE
     Dosage: 30MG, CUTTING A 40MG PILL
     Route: 048
  2. LATUDA [Suspect]
     Active Substance: LURASIDONE HYDROCHLORIDE
     Dosage: 15MG, CUTTING A 40MG PILL
     Route: 048
  3. LATUDA [Suspect]
     Active Substance: LURASIDONE HYDROCHLORIDE
     Dosage: 5MG, CUTTING A 20MG PILL
     Route: 048

REACTIONS (10)
  - Weight increased [Unknown]
  - Blindness [Unknown]
  - Toxicity to various agents [Unknown]
  - Fall [Unknown]
  - Off label use [Unknown]
  - Arrhythmia [Unknown]
  - Underdose [Unknown]
  - Diabetes mellitus [Unknown]
  - Blood pressure increased [Unknown]
  - Wrong technique in product usage process [Unknown]
